FAERS Safety Report 17749195 (Version 1)
Quarter: 2020Q2

REPORT INFORMATION
  Report Type: Spontaneous
  Country: JP (occurrence: JP)
  Receive Date: 20200506
  Receipt Date: 20200506
  Transmission Date: 20200714
  Serious: Yes (Other)
  Sender: FDA-Public Use
  Company Number: JP-DENTSPLY-2020SCDP000161

PATIENT

DRUGS (2)
  1. LIDOCAINE HCL [Suspect]
     Active Substance: LIDOCAINE HYDROCHLORIDE
     Indication: LOCAL ANAESTHESIA
     Dosage: 1% LIDOCAINE + 0.4% HYALURONATE SODIUM
  2. HYALURONATE SODIUM [Suspect]
     Active Substance: HYALURONATE SODIUM
     Indication: LOCAL ANAESTHESIA
     Dosage: 1% LIDOCAINE + 0.4% HYALURONATE SODIUM

REACTIONS (4)
  - Hypoxia [Unknown]
  - Bradycardia [Unknown]
  - Sedation [Unknown]
  - Hypotension [Unknown]
